FAERS Safety Report 19761378 (Version 2)
Quarter: 2021Q3

REPORT INFORMATION
  Report Type: Other
  Country: US (occurrence: US)
  Receive Date: 20210830
  Receipt Date: 20210901
  Transmission Date: 20211014
  Serious: Yes (Death)
  Sender: FDA-Public Use
  Company Number: US-ROCHE-2898628

PATIENT
  Sex: Female

DRUGS (1)
  1. OCREVUS [Suspect]
     Active Substance: OCRELIZUMAB
     Indication: PRIMARY PROGRESSIVE MULTIPLE SCLEROSIS
     Dosage: INFUSE 600 MG INTRAVENOUSLY EVERY 6 MONTH?DATES OF TREATMENT: 06?NOV?2018, 20?NOV?2018, 08?APR?2019,
     Route: 042

REACTIONS (1)
  - Death [Fatal]
